FAERS Safety Report 12647763 (Version 1)
Quarter: 2016Q3

REPORT INFORMATION
  Report Type: Spontaneous
  Country: US (occurrence: None)
  Receive Date: 20160811
  Receipt Date: 20160811
  Transmission Date: 20161109
  Serious: Yes (Hospitalization)
  Sender: FDA-Public Use
  Company Number: None

PATIENT
  Age: 58 Year
  Sex: Female

DRUGS (1)
  1. CAPECITABINE 500MG TAB TEVA PHARMACEUTICALS USA [Suspect]
     Active Substance: CAPECITABINE
     Indication: NEOPLASM MALIGNANT
     Dosage: CAPECITABINE 1 500MG TAB ?4-QD AM?3-QD PM
     Route: 048
     Dates: start: 20160514

REACTIONS (4)
  - Clostridium difficile colitis [None]
  - Blister [None]
  - Skin exfoliation [None]
  - Weight decreased [None]

NARRATIVE: CASE EVENT DATE: 2016
